FAERS Safety Report 23241684 (Version 1)
Quarter: 2023Q4

REPORT INFORMATION
  Report Type: Spontaneous
  Country: US (occurrence: US)
  Receive Date: 20231129
  Receipt Date: 20231129
  Transmission Date: 20240110
  Serious: Yes (Hospitalization)
  Sender: FDA-Public Use
  Company Number: US-MYLANLABS-2023M1126436

PATIENT
  Age: 36 Year
  Sex: Female

DRUGS (2)
  1. METHIMAZOLE [Suspect]
     Active Substance: METHIMAZOLE
     Indication: Graves^ disease
     Dosage: 10 MILLIGRAM, TID (INITIALLY THREE TIMES A DAY)
     Route: 065
  2. METHIMAZOLE [Suspect]
     Active Substance: METHIMAZOLE
     Dosage: 10 MILLIGRAM, BID, REDUCED TO TWO TIMES A DAY
     Route: 065

REACTIONS (6)
  - Agranulocytosis [Recovering/Resolving]
  - Tonsillitis [Recovering/Resolving]
  - Epiglottitis [Recovering/Resolving]
  - Herpes simplex [Recovering/Resolving]
  - Oral candidiasis [Recovering/Resolving]
  - Peritonsillar abscess [Recovering/Resolving]
